FAERS Safety Report 9432237 (Version 1)
Quarter: 2013Q3

REPORT INFORMATION
  Report Type: Report from Study
  Country: AU (occurrence: AU)
  Receive Date: 20130731
  Receipt Date: 20130731
  Transmission Date: 20140515
  Serious: Yes (Other)
  Sender: FDA-Public Use
  Company Number: PHHY2013AU039858

PATIENT
  Age: 23 Year
  Sex: Male

DRUGS (1)
  1. CLOZARIL [Suspect]
     Dosage: 0 MG, UNK
     Dates: start: 20120411, end: 20130330

REACTIONS (2)
  - Mental impairment [Unknown]
  - Neutrophil count decreased [Recovered/Resolved]
